FAERS Safety Report 8354062-X (Version None)
Quarter: 2012Q2

REPORT INFORMATION
  Report Type: 
  Country: None (occurrence: None)
  Receive Date: 20120511
  Receipt Date: 20120502
  Transmission Date: 20120825
  Serious: Yes (Hospitalization, Other)
  Sender: FDA-Public Use
  Company Number: US-ASTRAZENECA-2012SE17071

PATIENT
  Age: 64 Year
  Sex: Female

DRUGS (2)
  1. NEXIUM [Suspect]
     Route: 048
  2. ACIPHEX [Concomitant]

REACTIONS (17)
  - GASTROOESOPHAGEAL REFLUX DISEASE [None]
  - WEIGHT DECREASED [None]
  - OSTEOPOROSIS [None]
  - INTENTIONAL DRUG MISUSE [None]
  - DEPRESSION [None]
  - MALAISE [None]
  - DISEASE RECURRENCE [None]
  - OESOPHAGEAL DISORDER [None]
  - DYSPHONIA [None]
  - BACK DISORDER [None]
  - ONYCHOMADESIS [None]
  - INTERVERTEBRAL DISC DEGENERATION [None]
  - ALOPECIA [None]
  - COELIAC DISEASE [None]
  - BONE DISORDER [None]
  - KYPHOSIS [None]
  - ADVERSE EVENT [None]
